FAERS Safety Report 4750214-6 (Version None)
Quarter: 2005Q3

REPORT INFORMATION
  Report Type: 
  Country: None (occurrence: None)
  Receive Date: 20050823
  Receipt Date: 20050713
  Transmission Date: 20060218
  Serious: Yes (Life-Threatening, Hospitalization)
  Sender: FDA-Public Use
  Company Number: FI-ABBOTT-05P-055-0305792-00

PATIENT
  Sex: Female
  Weight: 90 kg

DRUGS (11)
  1. HUMIRA [Suspect]
     Indication: JUVENILE ARTHRITIS
     Route: 058
     Dates: start: 20050408, end: 20050430
  2. HUMIRA [Suspect]
     Route: 058
     Dates: start: 20050616
  3. PREDNISOLONE [Suspect]
     Indication: ARTHRALGIA
     Dates: start: 20050512
  4. NALTREXONE HYDROCHLORIDE [Concomitant]
     Indication: JUVENILE ARTHRITIS
     Route: 048
  5. NALTREXONE HYDROCHLORIDE [Concomitant]
     Dates: start: 20050408
  6. AMITRIPTYLINE HCL [Concomitant]
     Indication: FIBROMYALGIA
     Route: 048
  7. CONTRACEPTIS [Concomitant]
     Indication: DRUG USE FOR UNKNOWN INDICATION
  8. VOLVITE [Concomitant]
     Indication: DRUG USE FOR UNKNOWN INDICATION
  9. BUCINDOLOL HYDROCHLORIDE [Concomitant]
     Indication: PAIN
  10. MELOXICAM [Concomitant]
     Indication: PAIN
  11. LEVONORGESTREL [Concomitant]
     Indication: ORAL CONTRACEPTION
     Route: 015
     Dates: start: 20050616

REACTIONS (13)
  - ACNE [None]
  - ARTHRALGIA [None]
  - ASTHENIA [None]
  - CARDIO-RESPIRATORY DISTRESS [None]
  - CHOLELITHIASIS [None]
  - DRY EYE [None]
  - DRY MOUTH [None]
  - DYSPNOEA [None]
  - ELECTROCARDIOGRAM QRS COMPLEX PROLONGED [None]
  - MIGRAINE [None]
  - NECK PAIN [None]
  - PULMONARY EMBOLISM [None]
  - SYNCOPE [None]
